FAERS Safety Report 7270111-4 (Version None)
Quarter: 2011Q1

REPORT INFORMATION
  Report Type: 
  Country: None (occurrence: None)
  Receive Date: 20110202
  Receipt Date: 20110125
  Transmission Date: 20110831
  Serious: Yes (Death)
  Sender: FDA-Public Use
  Company Number: FR-ELI_LILLY_AND_COMPANY-FR201012006592

PATIENT
  Age: 57 Year
  Sex: Female

DRUGS (5)
  1. LOXAPAC [Concomitant]
     Indication: BIPOLAR DISORDER
     Dosage: 50 MG, EACH EVENING
     Route: 048
  2. ZYPREXA [Suspect]
     Indication: BIPOLAR DISORDER
     Dosage: 10 MG, EACH EVENING
     Route: 048
     Dates: start: 20101103
  3. DEPAMIDE [Concomitant]
     Indication: BIPOLAR DISORDER
     Dosage: 300 MG, EACH EVENING
     Route: 048
  4. VENLAFAXINE [Concomitant]
     Indication: BIPOLAR DISORDER
     Dosage: 75 MG, EACH EVENING
     Route: 048
  5. XANAX [Concomitant]
     Indication: BIPOLAR DISORDER
     Dosage: 0.25 MG, EACH EVENING
     Route: 048

REACTIONS (6)
  - BACK PAIN [None]
  - DIABETES MELLITUS [None]
  - COUGH [None]
  - SYNCOPE [None]
  - SUDDEN DEATH [None]
  - MALAISE [None]
